FAERS Safety Report 22519508 (Version 1)
Quarter: 2023Q2

REPORT INFORMATION
  Report Type: Spontaneous
  Country: US (occurrence: None)
  Receive Date: 20230602
  Receipt Date: 20230602
  Transmission Date: 20230721
  Serious: Yes (Hospitalization)
  Sender: FDA-Public Use
  Company Number: None

PATIENT
  Age: 70 Year
  Sex: Female
  Weight: 71 kg

DRUGS (1)
  1. FERRLECIT [Suspect]
     Active Substance: SODIUM FERRIC GLUCONATE COMPLEX
     Indication: Anaemia
     Dosage: OTHER FREQUENCY : ONCE;?
     Route: 041
     Dates: start: 20230601, end: 20230601

REACTIONS (3)
  - Hypotension [None]
  - Syncope [None]
  - Infusion related reaction [None]

NARRATIVE: CASE EVENT DATE: 20230601
